FAERS Safety Report 8585867 (Version 7)
Quarter: 2013Q1

REPORT INFORMATION
  Report Type: Spontaneous
  Country: FR (occurrence: FR)
  Receive Date: 20120530
  Receipt Date: 20130306
  Transmission Date: 20140127
  Serious: Yes (Death)
  Sender: FDA-Public Use
  Company Number: PHHY2012FR044986

PATIENT
  Age: 26 Year
  Sex: Male

DRUGS (3)
  1. GILENYA [Suspect]
     Indication: MULTIPLE SCLEROSIS
     Route: 048
     Dates: start: 20120125
  2. XANAX [Suspect]
     Indication: DEPRESSION
     Route: 048
     Dates: start: 201201
  3. PROZAC [Suspect]
     Indication: DEPRESSION
     Dosage: 20 MG, UNK
     Route: 048
     Dates: start: 201201

REACTIONS (2)
  - Death [Fatal]
  - Heart rate increased [Unknown]
